FAERS Safety Report 5468273-4 (Version None)
Quarter: 2007Q3

REPORT INFORMATION
  Report Type: 
  Country: None (occurrence: None)
  Receive Date: 20070926
  Receipt Date: 20070914
  Transmission Date: 20080115
  Serious: Yes (Hospitalization)
  Sender: FDA-Public Use
  Company Number: ES-ELI_LILLY_AND_COMPANY-ES97021588A

PATIENT
  Age: 49 Year
  Sex: Male

DRUGS (3)
  1. PROZAC [Suspect]
     Indication: DEPRESSION
     Dosage: 20 MG, DAILY (1/D)
     Route: 048
  2. DIAZEPAM [Concomitant]
     Dosage: 10 MG, UNKNOWN
  3. SULPRID [Concomitant]
     Dosage: 100 MG, UNKNOWN

REACTIONS (1)
  - CHOLESTASIS [None]
